FAERS Safety Report 23542314 (Version 1)
Quarter: 2024Q1

REPORT INFORMATION
  Report Type: Report from Study
  Country: CL (occurrence: CL)
  Receive Date: 20240220
  Receipt Date: 20240220
  Transmission Date: 20240410
  Serious: Yes (Other)
  Sender: FDA-Public Use
  Company Number: CL-JNJFOC-20231281401

PATIENT
  Age: 68 Year
  Sex: Male

DRUGS (1)
  1. SIMPONI [Suspect]
     Active Substance: GOLIMUMAB
     Indication: Rheumatoid arthritis
     Dosage: LAST DRUG APPLICATION : 22-NOV-2023
     Route: 058
     Dates: start: 20220307

REACTIONS (2)
  - Inguinal hernia [Unknown]
  - Nasopharyngitis [Unknown]
